FAERS Safety Report 6049449-4 (Version None)
Quarter: 2009Q1

REPORT INFORMATION
  Report Type: 
  Country: None (occurrence: None)
  Receive Date: 20090121
  Receipt Date: 20090105
  Transmission Date: 20090719
  Serious: Yes (Hospitalization)
  Sender: FDA-Public Use
  Company Number: 100#02#2009-00050

PATIENT
  Age: 71 Year
  Sex: Male

DRUGS (21)
  1. OMEPRAZOLE [Suspect]
     Indication: DRUG USE FOR UNKNOWN INDICATION
     Dosage: 20 MG ORAL
     Route: 048
  2. SALBUTAMOL SULPHATE HFA-CFC FREE [Suspect]
     Indication: CHRONIC OBSTRUCTIVE PULMONARY DISEASE
     Dosage: RESPIRATORY (INHALATION)
     Route: 055
  3. SALBUTAMOL SULPHATE [Suspect]
     Indication: CHRONIC OBSTRUCTIVE PULMONARY DISEASE
     Dosage: RESPIRATORY (INHALATION)
     Route: 055
  4. ROPINIROLE [Suspect]
     Indication: RESTLESS LEGS SYNDROME
     Dosage: 24 MG ORAL
     Route: 048
  5. MIRAPEX [Suspect]
     Indication: RESTLESS LEGS SYNDROME
     Dosage: 0.176 MG ORAL
     Route: 048
  6. PROCHLORPERAZINE [Suspect]
     Indication: NAUSEA
     Dosage: 90 MG ORAL
     Route: 048
  7. FLUTICASONE+SALMETEROL HFA-CFC FREE [Suspect]
     Indication: CHRONIC OBSTRUCTIVE PULMONARY DISEASE
     Dosage: 2 PUFF (S) TWICE PER DAY RESPIRATORY (INHALATION)
     Route: 055
  8. ACETYLSALICYLIC ACID SRT [Suspect]
     Indication: CARDIAC FAILURE
     Dosage: 75 MG ORAL
     Route: 048
  9. IPRATROPIUM BROMIDE [Suspect]
     Indication: CHRONIC OBSTRUCTIVE PULMONARY DISEASE
     Dosage: ORAL
     Route: 048
  10. FRUSEMIDE  (FUROSEMIDE) [Suspect]
     Indication: LYMPHOEDEMA
     Dosage: 40 MG ORAL
     Route: 048
  11. NITROGLYCERIN [Suspect]
     Indication: ANGINA PECTORIS
     Dosage: ORAL
     Route: 048
  12. PERINDOPRIL ERBUMINE [Suspect]
     Indication: HYPERTENSION
     Dosage: ORAL
     Route: 048
  13. SPIRONOLACTONE [Suspect]
     Indication: LYMPHOEDEMA
     Dosage: ORAL
     Route: 048
  14. TIOTROPIUM [Suspect]
     Indication: CHRONIC OBSTRUCTIVE PULMONARY DISEASE
     Dosage: 18 MCG
  15. DILTIAZEM HCL [Suspect]
     Indication: CARDIAC DISORDER
     Dosage: 90 MG ORAL
     Route: 048
  16. PREDNISOLONE [Suspect]
     Indication: DRUG USE FOR UNKNOWN INDICATION
     Dosage: 20 MG ORAL
     Route: 048
  17. CODEINE [Suspect]
     Indication: PAIN
     Dosage: 60 MG AS REQUIRED ORAL
     Route: 048
  18. DIGOXIN [Suspect]
     Indication: CARDIAC DISORDER
     Dosage: 125 MG ORAL
     Route: 048
  19. VISOPROLOL [Suspect]
     Indication: CARDIAC DISORDER
     Dosage: 1.25 MG
  20. MORPHINE [Concomitant]
  21. SINEMET [Concomitant]

REACTIONS (7)
  - CYSTITIS [None]
  - HEART RATE INCREASED [None]
  - HEART RATE IRREGULAR [None]
  - HYPOTENSION [None]
  - KIDNEY INFECTION [None]
  - LYMPHOEDEMA [None]
  - PULMONARY EMBOLISM [None]
